FAERS Safety Report 7065693-1 (Version None)
Quarter: 2010Q4

REPORT INFORMATION
  Report Type: 
  Country: None (occurrence: None)
  Receive Date: 20101027
  Receipt Date: 20101013
  Transmission Date: 20110411
  Serious: Yes (Other)
  Sender: FDA-Public Use
  Company Number: CA-GENENTECH-220640

PATIENT
  Sex: Female
  Weight: 144.6 kg

DRUGS (3)
  1. XOLAIR [Suspect]
     Indication: ASTHMA
     Dosage: 300 MG, SINGLE
     Route: 058
     Dates: start: 20051112, end: 20051210
  2. SYMBICORT [Concomitant]
     Indication: ASTHMA
  3. NASONEX [Concomitant]
     Indication: ASTHMA

REACTIONS (6)
  - CHEST DISCOMFORT [None]
  - DIZZINESS [None]
  - ERYTHEMA [None]
  - HEADACHE [None]
  - STREPTOCOCCAL INFECTION [None]
  - THROAT TIGHTNESS [None]
